FAERS Safety Report 10080648 (Version 1)
Quarter: 2014Q2

REPORT INFORMATION
  Report Type: Spontaneous
  Country: DE (occurrence: DE)
  Receive Date: 20140416
  Receipt Date: 20140416
  Transmission Date: 20141212
  Serious: Yes (Hospitalization)
  Sender: FDA-Public Use
  Company Number: DE-JNJFOC-20140408765

PATIENT
  Age: 72 Year
  Sex: Female
  Weight: 85 kg

DRUGS (3)
  1. XARELTO [Suspect]
     Indication: CEREBROVASCULAR ACCIDENT PROPHYLAXIS
     Route: 048
     Dates: start: 20130801, end: 20140311
  2. XARELTO [Suspect]
     Indication: ATRIAL FIBRILLATION
     Route: 048
     Dates: start: 20130801, end: 20140311
  3. XARELTO [Suspect]
     Indication: TACHYARRHYTHMIA
     Route: 048
     Dates: start: 20130801, end: 20140311

REACTIONS (3)
  - Spontaneous haematoma [Recovering/Resolving]
  - Local swelling [Recovering/Resolving]
  - Blister [Recovering/Resolving]
